FAERS Safety Report 18940633 (Version 1)
Quarter: 2021Q1

REPORT INFORMATION
  Report Type: Spontaneous
  Country: JP (occurrence: JP)
  Receive Date: 20210225
  Receipt Date: 20210225
  Transmission Date: 20210420
  Serious: Yes (Hospitalization)
  Sender: FDA-Public Use
  Company Number: JP-MYLANLABS-2021M1011228

PATIENT
  Age: 45 Year
  Sex: Male

DRUGS (3)
  1. DAPTOMYCIN. [Suspect]
     Active Substance: DAPTOMYCIN
     Indication: PRODUCT USED FOR UNKNOWN INDICATION
     Route: 065
  2. VANCOMYCIN [Suspect]
     Active Substance: VANCOMYCIN
     Indication: PRODUCT USED FOR UNKNOWN INDICATION
     Route: 065
  3. RIFAMPIN. [Suspect]
     Active Substance: RIFAMPIN
     Indication: PRODUCT USED FOR UNKNOWN INDICATION
     Route: 065

REACTIONS (9)
  - Vascular graft complication [Unknown]
  - Altered state of consciousness [Unknown]
  - Pyrexia [Unknown]
  - Multiple-drug resistance [Unknown]
  - Cerebral haemorrhage [Unknown]
  - Mediastinal abscess [Unknown]
  - Staphylococcal infection [Unknown]
  - Graft infection [Unknown]
  - Haemorrhagic cerebral infarction [Unknown]
